FAERS Safety Report 11248616 (Version 2)
Quarter: 2016Q1

REPORT INFORMATION
  Report Type: Spontaneous
  Country: US (occurrence: US)
  Receive Date: 20150708
  Receipt Date: 20160226
  Transmission Date: 20160525
  Serious: No
  Sender: FDA-Public Use
  Company Number: US-PFIZER INC-2015224642

PATIENT
  Age: 63 Year
  Sex: Female

DRUGS (1)
  1. LYRICA [Suspect]
     Active Substance: PREGABALIN
     Dosage: 150 MG, 3X/DAY

REACTIONS (6)
  - Nausea [Unknown]
  - Vision blurred [Unknown]
  - Peripheral swelling [Unknown]
  - Pain [Unknown]
  - Hyperhidrosis [Unknown]
  - Constipation [Unknown]
